FAERS Safety Report 5352207-7 (Version None)
Quarter: 2007Q2

REPORT INFORMATION
  Report Type: 
  Country: None (occurrence: None)
  Receive Date: 20070611
  Receipt Date: 20070601
  Transmission Date: 20071010
  Serious: Yes (Hospitalization)
  Sender: FDA-Public Use
  Company Number: CN-BAYER-200713091GDS

PATIENT
  Age: 78 Year
  Sex: Male
  Weight: 48 kg

DRUGS (2)
  1. SORAFENIB [Suspect]
     Indication: RENAL CELL CARCINOMA STAGE UNSPECIFIED
     Dosage: TOTAL DAILY DOSE: 800 MG
     Route: 048
     Dates: start: 20070528, end: 20070530
  2. BETALOC [Concomitant]
     Indication: HYPERTENSION
     Route: 048
     Dates: start: 20060623

REACTIONS (1)
  - CEREBRAL ISCHAEMIA [None]
